FAERS Safety Report 10656985 (Version 1)
Quarter: 2014Q4

REPORT INFORMATION
  Report Type: Spontaneous
  Country: US (occurrence: US)
  Receive Date: 20141217
  Receipt Date: 20141217
  Transmission Date: 20150529
  Serious: Yes (Death, Hospitalization, Other)
  Sender: FDA-Public Use
  Company Number: US-SUN PHARMACEUTICAL INDUSTRIES LTD-2014SUN02811

PATIENT
  Age: 2 Year
  Sex: Female

DRUGS (1)
  1. CLONIDINE HYDROCHLORIDE TABLETS, USP 0.3 MG [Suspect]
     Active Substance: CLONIDINE HYDROCHLORIDE
     Indication: PRODUCT USED FOR UNKNOWN INDICATION
     Dosage: UNK (55 TABLETS OF UNKNOWN STRENGTH)
     Route: 048

REACTIONS (4)
  - Aspiration [Unknown]
  - Accidental exposure to product by child [Unknown]
  - Unresponsive to stimuli [Unknown]
  - Accidental overdose [Fatal]
